FAERS Safety Report 11775579 (Version 5)
Quarter: 2017Q2

REPORT INFORMATION
  Report Type: Spontaneous
  Country: US (occurrence: US)
  Receive Date: 20151125
  Receipt Date: 20170511
  Transmission Date: 20170829
  Serious: No
  Sender: FDA-Public Use
  Company Number: US-JNJFOC-20151104382

PATIENT
  Sex: Male

DRUGS (7)
  1. RISPERDAL [Suspect]
     Active Substance: RISPERIDONE
     Indication: POST-TRAUMATIC STRESS DISORDER
     Dosage: VARYING DOSES OF 1 MG AND 2 MG.
     Route: 048
     Dates: start: 201001, end: 201112
  2. RISPERDAL [Suspect]
     Active Substance: RISPERIDONE
     Indication: ANTISOCIAL PERSONALITY DISORDER
     Dosage: VARYING DOSES OF 1 MG AND 2 MG.
     Route: 048
     Dates: start: 201001, end: 201112
  3. RISPERDAL [Suspect]
     Active Substance: RISPERIDONE
     Indication: HALLUCINATION
     Dosage: VARYING DOSES OF 1 MG AND 2 MG.
     Route: 048
     Dates: start: 201001, end: 201112
  4. RISPERDAL [Suspect]
     Active Substance: RISPERIDONE
     Indication: BIPOLAR DISORDER
     Dosage: VARYING DOSES OF 1 MG AND 2 MG.
     Route: 048
     Dates: start: 201001, end: 201112
  5. RISPERIDONE. [Suspect]
     Active Substance: RISPERIDONE
     Indication: PRODUCT USED FOR UNKNOWN INDICATION
     Dosage: VARYING DOSES OF 1MG, 2MG
     Route: 048
  6. RISPERDAL [Suspect]
     Active Substance: RISPERIDONE
     Indication: DEPRESSION
     Dosage: VARYING DOSES OF 1 MG AND 2 MG.
     Route: 048
     Dates: start: 201001, end: 201112
  7. RISPERDAL [Suspect]
     Active Substance: RISPERIDONE
     Indication: ATTENTION DEFICIT/HYPERACTIVITY DISORDER
     Dosage: VARYING DOSES OF 1 MG AND 2 MG.
     Route: 048
     Dates: start: 201001, end: 201112

REACTIONS (1)
  - Gynaecomastia [Unknown]

NARRATIVE: CASE EVENT DATE: 2014
